FAERS Safety Report 4276401-1 (Version None)
Quarter: 2004Q1

REPORT INFORMATION
  Report Type: 
  Country: None (occurrence: None)
  Receive Date: 20040121
  Receipt Date: 20040114
  Transmission Date: 20041129
  Serious: Yes (Hospitalization)
  Sender: FDA-Public Use
  Company Number: PHRM2004FR00540

PATIENT
  Age: 84 Year
  Sex: Female

DRUGS (4)
  1. TEGRETOL [Suspect]
     Indication: PARTIAL SEIZURES
     Dosage: 600 MG/DAY
     Route: 048
     Dates: start: 19820101
  2. NIDREL [Suspect]
     Indication: HYPERTENSION
     Route: 048
  3. TENORMIN [Suspect]
     Indication: HYPERTENSION
     Route: 048
  4. AMLOR [Suspect]
     Indication: HYPERTENSION
     Route: 048

REACTIONS (3)
  - CEREBROVASCULAR ACCIDENT [None]
  - DRUG INTERACTION [None]
  - HYPERTENSION [None]
